FAERS Safety Report 5194069-7 (Version None)
Quarter: 2006Q4

REPORT INFORMATION
  Report Type: 
  Country: None (occurrence: None)
  Receive Date: 20061222
  Receipt Date: 20061214
  Transmission Date: 20070319
  Serious: Yes (Other)
  Sender: FDA-Public Use
  Company Number: HQWYE38812OCT06

PATIENT
  Sex: Female

DRUGS (7)
  1. PROTONIX [Suspect]
     Dosage: 40 MG UNSPECIFIED FREQUENCY
  2. BISOPROLOL FUMARATE AND HYDROCHLOROTHIAZIDE [Suspect]
     Dosage: 10/6.25 MG UNSPECIFIED FREQUENCY
  3. COZAAR [Suspect]
     Dosage: 100 MG UNSPECIFIED FREQUENCY
  4. LEVOTHYROXINE SODIUM [Suspect]
     Dosage: 50 MCG UNSPECIFICED FREQUENCY
  5. NORVASC [Suspect]
     Dosage: 5 MG UNSPECIFIED FREQUENCY
  6. PROCRIT [Suspect]
     Dosage: UNSPECIFIED ; EVERY 3 WEEKS
  7. ZOLOFT [Suspect]
     Dosage: 50 MG UNSPECIFIED FREQUENCY

REACTIONS (1)
  - SINGLE FUNCTIONAL KIDNEY [None]
